FAERS Safety Report 10694687 (Version 3)
Quarter: 2015Q2

REPORT INFORMATION
  Report Type: Spontaneous
  Country: US (occurrence: US)
  Receive Date: 20150107
  Receipt Date: 20150623
  Transmission Date: 20150821
  Serious: Yes (Other)
  Sender: FDA-Public Use
  Company Number: US-BAYER-2015-001624

PATIENT
  Age: 25 Year
  Sex: Female
  Weight: 90.7 kg

DRUGS (10)
  1. DAYPRO [Concomitant]
     Active Substance: OXAPROZIN
     Dosage: 600 MG, UNK
     Route: 048
     Dates: start: 20110205
  2. LORTAB [Concomitant]
     Active Substance: ACETAMINOPHEN\HYDROCODONE BITARTRATE
     Dosage: 5/500MG, UNK
     Dates: start: 20110205
  3. CIPRO [Concomitant]
     Active Substance: CIPROFLOXACIN HYDROCHLORIDE
     Dosage: 250 MG, UNK
     Route: 048
     Dates: start: 20110205
  4. FLEXERIL [Concomitant]
     Active Substance: CYCLOBENZAPRINE HYDROCHLORIDE
     Dosage: 10 MG, UNK
     Route: 048
     Dates: start: 20110205
  5. MIRENA [Suspect]
     Active Substance: LEVONORGESTREL
     Indication: CONTRACEPTION
     Dosage: 20 MCG/24HR, CONT
     Route: 015
     Dates: start: 20060701, end: 201211
  6. LUNESTA [Concomitant]
     Active Substance: ESZOPICLONE
     Dosage: 3 MG, UNK
     Route: 048
     Dates: start: 20110205
  7. VALIUM [Concomitant]
     Active Substance: DIAZEPAM
     Dosage: 5 MG, UNK
     Route: 048
     Dates: start: 20110205
  8. HYDROCODONE [Concomitant]
     Active Substance: HYDROCODONE
     Dosage: 5 MG, UNK
     Route: 048
     Dates: start: 20110205
  9. DARVON [Concomitant]
     Active Substance: PROPOXYPHENE HYDROCHLORIDE
     Dosage: 65 MG, UNK
     Route: 048
     Dates: start: 20110205
  10. PHENTERMINE [Concomitant]
     Active Substance: PHENTERMINE
     Dosage: UNK
     Route: 048
     Dates: start: 20110205

REACTIONS (11)
  - Depression [None]
  - Drug ineffective [None]
  - Device dislocation [None]
  - Ectopic pregnancy with contraceptive device [None]
  - Depression [None]
  - Abortion early [None]
  - Pain [None]
  - Injury [None]
  - Emotional distress [None]
  - Off label use of device [None]
  - Device misuse [None]

NARRATIVE: CASE EVENT DATE: 201102
